FAERS Safety Report 7444571-X (Version None)
Quarter: 2011Q2

REPORT INFORMATION
  Report Type: 
  Country: None (occurrence: None)
  Receive Date: 20110427
  Receipt Date: 20110427
  Transmission Date: 20111010
  Serious: Yes (Hospitalization)
  Sender: FDA-Public Use
  Company Number: None

PATIENT
  Age: 19 Year
  Sex: Male
  Weight: 71.2147 kg

DRUGS (3)
  1. ZYPREXA [Suspect]
     Indication: DEPRESSION
     Dosage: ONE 5 MG TABLET DAILY PO
     Route: 048
     Dates: start: 20101103, end: 20110301
  2. ZYPREXA [Suspect]
     Indication: DEPRESSION
     Dosage: ONE 10 MG TABLET DAILY PO
     Route: 048
     Dates: start: 20101229, end: 20110210
  3. ZYPREXA [Suspect]
     Indication: OBSESSIVE-COMPULSIVE DISORDER
     Dosage: ONE 10 MG TABLET DAILY PO
     Route: 048
     Dates: start: 20101229, end: 20110210

REACTIONS (5)
  - ABNORMAL BEHAVIOUR [None]
  - WEIGHT INCREASED [None]
  - SOMNOLENCE [None]
  - OBSESSIVE-COMPULSIVE DISORDER [None]
  - THEFT [None]
